FAERS Safety Report 4738495-6 (Version None)
Quarter: 2005Q3

REPORT INFORMATION
  Report Type: 
  Country: None (occurrence: None)
  Receive Date: 20050809
  Receipt Date: 20050803
  Transmission Date: 20060218
  Serious: Yes (Life-Threatening, Other)
  Sender: FDA-Public Use
  Company Number: US-JNJFOC-20050406607

PATIENT
  Sex: Male
  Weight: 23.59 kg

DRUGS (2)
  1. CHILDREN'S MOTRIN [Suspect]
     Route: 048
  2. CHILDREN'S MOTRIN [Suspect]
     Route: 048

REACTIONS (4)
  - ANAPHYLACTIC REACTION [None]
  - DEAFNESS [None]
  - DEAFNESS UNILATERAL [None]
  - NERVE INJURY [None]
